FAERS Safety Report 4956825-7 (Version None)
Quarter: 2006Q1

REPORT INFORMATION
  Report Type: 
  Country: None (occurrence: None)
  Receive Date: 20060329
  Receipt Date: 20060317
  Transmission Date: 20060701
  Serious: Yes (Hospitalization)
  Sender: FDA-Public Use
  Company Number: GB-BRISTOL-MYERS SQUIBB COMPANY-13328190

PATIENT
  Age: 65 Year
  Sex: Female

DRUGS (6)
  1. CETUXIMAB [Suspect]
     Indication: COLORECTAL CANCER
     Dosage: CYCLE 1, DAY 1
     Dates: start: 20060307, end: 20060307
  2. OXALIPLATIN [Suspect]
     Indication: COLORECTAL CANCER
     Dates: start: 20060307, end: 20060307
  3. CAPECITABINE [Suspect]
     Indication: COLORECTAL CANCER
     Dates: start: 20060308, end: 20060310
  4. OMEPRAZOLE [Concomitant]
     Indication: DRUG USE FOR UNKNOWN INDICATION
  5. BECLOMETHASONE DIPROPIONATE [Concomitant]
     Indication: DRUG USE FOR UNKNOWN INDICATION
     Dosage: DOSING = 4 PUFFS
  6. VENTOLIN [Concomitant]
     Indication: DRUG USE FOR UNKNOWN INDICATION

REACTIONS (10)
  - ASTHENIA [None]
  - DIPLOPIA [None]
  - DIZZINESS [None]
  - DYSARTHRIA [None]
  - DYSPNOEA [None]
  - FACIAL PARESIS [None]
  - HYPOKALAEMIA [None]
  - PAIN [None]
  - PAIN IN EXTREMITY [None]
  - URINARY INCONTINENCE [None]
